FAERS Safety Report 8019464-X (Version None)
Quarter: 2012Q1

REPORT INFORMATION
  Report Type: 
  Country: None (occurrence: None)
  Receive Date: 20120103
  Receipt Date: 20111221
  Transmission Date: 20120608
  Serious: Yes (Death, Hospitalization)
  Sender: FDA-Public Use
  Company Number: PT-ELI_LILLY_AND_COMPANY-PT201107006617

PATIENT
  Sex: Male
  Weight: 55 kg

DRUGS (8)
  1. FLUTICASONE PROPIONATE W/SALMETEROL [Concomitant]
     Indication: SWELLING FACE
     Dosage: UNK
     Dates: start: 20110527
  2. TRENTAL [Concomitant]
     Indication: PERIPHERAL VASCULAR DISORDER
     Dosage: UNK
     Dates: start: 20110503
  3. GEMCITABINE HYDROCHLORIDE [Suspect]
     Indication: NON-SMALL CELL LUNG CANCER STAGE IV
     Dosage: 1990 MG, OTHER
     Dates: start: 20110504, end: 20110715
  4. TRAMADOL HCL [Concomitant]
     Indication: BACK PAIN
  5. NECITUMUMAB (11F8) (LY3012211) [Suspect]
     Indication: NON-SMALL CELL LUNG CANCER STAGE IV
     Dosage: 800 MG, OTHER
     Dates: start: 20110504, end: 20110715
  6. CISPLATIN [Suspect]
     Indication: NON-SMALL CELL LUNG CANCER STAGE IV
     Dosage: 120 MG, OTHER
     Dates: start: 20110504, end: 20110715
  7. ASPIRIN [Concomitant]
     Indication: INFLAMMATION
     Dosage: UNK
     Dates: end: 20110525
  8. THEOPHYLLINE [Concomitant]
     Indication: BRONCHITIS CHRONIC

REACTIONS (2)
  - RESPIRATORY TRACT INFECTION [None]
  - NEUTROPENIA [None]
